FAERS Safety Report 7716850-X (Version None)
Quarter: 2011Q3

REPORT INFORMATION
  Report Type: 
  Country: None (occurrence: None)
  Receive Date: 20110829
  Receipt Date: 20110825
  Transmission Date: 20111222
  Serious: Yes (Other)
  Sender: FDA-Public Use
  Company Number: US-ALLERGAN-1108536US

PATIENT
  Age: 73 Year
  Sex: Female

DRUGS (2)
  1. OZURDEX [Suspect]
     Dosage: UNK
     Route: 031
     Dates: start: 20101207, end: 20101207
  2. OZURDEX [Suspect]
     Indication: CYSTOID MACULAR OEDEMA
     Dosage: 0.7 MG, SINGLE
     Route: 031
     Dates: start: 20110601, end: 20110601

REACTIONS (2)
  - CORNEAL OEDEMA [None]
  - DEVICE DISLOCATION [None]
